FAERS Safety Report 8444114-8 (Version None)
Quarter: 2012Q2

REPORT INFORMATION
  Report Type: 
  Country: None (occurrence: None)
  Receive Date: 20120618
  Receipt Date: 20120605
  Transmission Date: 20120825
  Serious: Yes (Hospitalization, Disabling, Other)
  Sender: FDA-Public Use
  Company Number: US-TYCO HEALTHCARE/MALLINCKRODT-T200901279

PATIENT
  Sex: Female

DRUGS (15)
  1. METOCLOPRAMIDE [Concomitant]
     Indication: NAUSEA
     Dosage: 5 MG TID BEFORE MEALS AND AT BEDIME AS NEEDED
  2. PROCARDIA XL [Concomitant]
     Dosage: 60 MG, BID
  3. EPOGEN [Concomitant]
     Dosage: 40,000 UNITS EVERY TUESDAY
  4. LISINOPRIL [Concomitant]
     Dosage: 20 MG, BID
  5. RENAGEL [Concomitant]
     Dosage: 800 MG, BID
  6. COLACE [Concomitant]
     Dosage: 10 MG, QD
  7. MICARDIS [Concomitant]
     Dosage: 80 MG, QD
  8. TERAZOSIN HCL [Concomitant]
     Dosage: 2 MG, AT BEDTIME
  9. OPTIMARK [Suspect]
     Indication: NUCLEAR MAGNETIC RESONANCE IMAGING
     Dosage: UNK
     Dates: start: 20060802, end: 20060802
  10. CALCIUM ACETATE [Concomitant]
     Dosage: THREE TABLETS DAILY WITH MEALS
  11. NOVOLOG [Concomitant]
     Dosage: VIA INSULIN PUMP 24 UNITS DAILY
  12. LEVAQUIN [Concomitant]
     Dosage: 250 MG, QD
  13. OPTIMARK [Suspect]
     Indication: ANGIOGRAM
     Dosage: 20 ML, SINGLE
     Dates: start: 20060805, end: 20060805
  14. METOPROLOL SUCCINATE EXTENDED RELEASE [Concomitant]
     Dosage: 100 MG, BID
  15. FLAGYL [Concomitant]
     Dosage: 500 MG, TID

REACTIONS (46)
  - PLEURAL EFFUSION [None]
  - ASCITES [None]
  - IMPAIRED GASTRIC EMPTYING [None]
  - MORGANELLA INFECTION [None]
  - HYPERHIDROSIS [None]
  - RENAL TRANSPLANT [None]
  - MUSCULOSKELETAL STIFFNESS [None]
  - ABDOMINAL PAIN [None]
  - CARDIOMEGALY [None]
  - HEPATOMEGALY [None]
  - ARTHRALGIA [None]
  - MOBILITY DECREASED [None]
  - NOCTURIA [None]
  - BRADYCARDIA [None]
  - RENAL TUBULAR NECROSIS [None]
  - PROTEUS INFECTION [None]
  - SPLENOMEGALY [None]
  - OPEN WOUND [None]
  - SKIN ULCER [None]
  - RASH [None]
  - OFF LABEL USE [None]
  - PERICARDIAL EFFUSION [None]
  - SPLENIC INFARCTION [None]
  - POLYURIA [None]
  - DECREASED APPETITE [None]
  - NAUSEA [None]
  - DIZZINESS [None]
  - CEREBROVASCULAR ACCIDENT [None]
  - CHOLECYSTITIS [None]
  - BILIARY DILATATION [None]
  - MUSCULAR WEAKNESS [None]
  - NEPHROGENIC SYSTEMIC FIBROSIS [None]
  - DEVICE RELATED SEPSIS [None]
  - GASTRITIS [None]
  - JOINT SWELLING [None]
  - PRURITUS [None]
  - CONSTIPATION [None]
  - HYPERCOAGULATION [None]
  - FATIGUE [None]
  - CONTUSION [None]
  - PULMONARY HYPERTENSION [None]
  - WEIGHT INCREASED [None]
  - CHILLS [None]
  - MELANOCYTIC NAEVUS [None]
  - MYALGIA [None]
  - WHEEZING [None]
